FAERS Safety Report 16360924 (Version 1)
Quarter: 2019Q2

REPORT INFORMATION
  Report Type: Spontaneous
  Country: US (occurrence: US)
  Receive Date: 20190528
  Receipt Date: 20190528
  Transmission Date: 20190711
  Serious: Yes (Other)
  Sender: FDA-Public Use
  Company Number: US-KYOWAKIRIN-2019BKK008086

PATIENT

DRUGS (1)
  1. CRYSVITA [Suspect]
     Active Substance: BUROSUMAB-TWZA
     Indication: PRODUCT USED FOR UNKNOWN INDICATION
     Dosage: 10 MG/ML, INJECT 1 ML EVERY 14 DAYS
     Route: 065
     Dates: start: 20181030

REACTIONS (5)
  - Seizure [Unknown]
  - Viral infection [Unknown]
  - Pyrexia [Unknown]
  - Blood phosphorus decreased [Unknown]
  - Malaise [Unknown]

NARRATIVE: CASE EVENT DATE: 2019
